FAERS Safety Report 4498670-5 (Version None)
Quarter: 2004Q4

REPORT INFORMATION
  Report Type: 
  Country: None (occurrence: None)
  Receive Date: 20041111
  Receipt Date: 20030529
  Transmission Date: 20050328
  Serious: Yes (Death, Other)
  Sender: FDA-Public Use
  Company Number: JP-ABBOTT-03P-087-0221900-00

PATIENT
  Sex: Female

DRUGS (10)
  1. KALETRA [Suspect]
     Indication: HIV INFECTION
     Route: 048
     Dates: start: 20030128, end: 20030928
  2. LAMIVUDINE [Suspect]
     Indication: HIV INFECTION
     Route: 048
     Dates: start: 20020401, end: 20020708
  3. LAMIVUDINE [Suspect]
     Route: 048
     Dates: start: 20021019, end: 20030127
  4. STAVUDINE [Suspect]
     Indication: HIV INFECTION
     Route: 048
     Dates: start: 20020401, end: 20020708
  5. STAVUDINE [Suspect]
     Route: 048
     Dates: start: 20021019, end: 20030127
  6. EFAVIRENZ [Suspect]
     Indication: HIV INFECTION
     Route: 048
     Dates: start: 20020401, end: 20030127
  7. TENOFOVIR [Concomitant]
     Indication: HIV INFECTION
     Route: 048
     Dates: start: 20030128, end: 20030929
  8. BACTRIM [Concomitant]
     Indication: INFECTION PROPHYLAXIS
     Route: 048
     Dates: start: 20020401, end: 20030623
  9. FAMOTIDINE [Concomitant]
     Indication: GASTRITIS
     Route: 048
     Dates: start: 20020401, end: 20030929
  10. MENATETRENONE [Concomitant]
     Indication: OSTEOPOROSIS
     Route: 048
     Dates: start: 20020401, end: 20030929

REACTIONS (5)
  - BREAST CANCER RECURRENT [None]
  - DYSPNOEA [None]
  - HYPERLACTACIDAEMIA [None]
  - METASTASES TO LUNG [None]
  - PLEURAL EFFUSION [None]
